FAERS Safety Report 5566085-4 (Version None)
Quarter: 2007Q4

REPORT INFORMATION
  Report Type: 
  Country: None (occurrence: None)
  Receive Date: 20071217
  Receipt Date: 20071217
  Transmission Date: 20080405
  Serious: Yes (Death)
  Sender: FDA-Public Use
  Company Number: None

PATIENT
  Sex: Male
  Weight: 30 kg

DRUGS (5)
  1. QUAD TUSS SUSPENSION   UNKNOWN    UNKNOWN [Suspect]
     Indication: RESPIRATORY DISORDER
     Dosage: 2.5ML   1X   PO
     Route: 048
  2. METHYLPHENIDATE HCL [Suspect]
     Indication: ATTENTION DEFICIT/HYPERACTIVITY DISORDER
     Dosage: 5MG  BID   PO
     Route: 048
  3. ACETAMINOPHEN [Concomitant]
  4. ALBUTEROL [Concomitant]
  5. PULMICORT [Concomitant]

REACTIONS (6)
  - CARDIAC ARREST [None]
  - LOSS OF CONSCIOUSNESS [None]
  - MUSCLE SPASMS [None]
  - MYDRIASIS [None]
  - PERIPHERAL COLDNESS [None]
  - PUPILLARY LIGHT REFLEX TESTS ABNORMAL [None]
